FAERS Safety Report 7100383-8 (Version None)
Quarter: 2010Q4

REPORT INFORMATION
  Report Type: 
  Country: None (occurrence: None)
  Receive Date: 20101112
  Receipt Date: 20101102
  Transmission Date: 20110411
  Serious: Yes (Hospitalization)
  Sender: FDA-Public Use
  Company Number: PHHY2010US74367

PATIENT

DRUGS (1)
  1. RECLAST [Suspect]
     Dosage: 5 MG
     Route: 042
     Dates: start: 20101029

REACTIONS (8)
  - ACUTE PHASE REACTION [None]
  - ANAEMIA [None]
  - BLOOD LACTIC ACID INCREASED [None]
  - HYPOCALCAEMIA [None]
  - INFLUENZA LIKE ILLNESS [None]
  - LEUKOPENIA [None]
  - NEUTROPHIL COUNT INCREASED [None]
  - PYREXIA [None]
